FAERS Safety Report 10026023 (Version 1)
Quarter: 2014Q1

REPORT INFORMATION
  Report Type: Report from Study
  Country: OM (occurrence: OM)
  Receive Date: 20140320
  Receipt Date: 20140320
  Transmission Date: 20141002
  Serious: Yes (Death)
  Sender: FDA-Public Use
  Company Number: OM-BAXTER-2014BAX014303

PATIENT
  Sex: 0

DRUGS (7)
  1. PRIMENE [Suspect]
     Indication: PARENTERAL NUTRITION
     Dosage: 1.6 G/KG ON DAY 1
     Route: 042
  2. PRIMENE 10% [Suspect]
     Dosage: 2 G/KG ON DAY 2
     Route: 042
  3. PRIMENE 10% [Suspect]
     Dosage: 2.5 G/KG ON DAY 3
     Route: 042
  4. PRIMENE 10% [Suspect]
     Dosage: 3 G/KG ON DAY 4
     Route: 042
  5. INTRALIPID EMULSION 20% [Suspect]
     Indication: PARENTERAL NUTRITION
     Dosage: 1 GM/KG ON DAY 1
     Route: 042
  6. INTRALIPID EMULSION 20% [Suspect]
     Dosage: 2 GM/KG ON DAY 2
     Route: 042
  7. INTRALIPID EMULSION 20% [Suspect]
     Dosage: 3 GM/KG ON DAY 3
     Route: 042

REACTIONS (1)
  - Death [Fatal]
